FAERS Safety Report 12681536 (Version 2)
Quarter: 2016Q3

REPORT INFORMATION
  Report Type: Spontaneous
  Country: US (occurrence: US)
  Receive Date: 20160824
  Receipt Date: 20160906
  Transmission Date: 20161109
  Serious: Yes (Hospitalization)
  Sender: FDA-Public Use
  Company Number: US-INSYS THERAPEUTICS, INC-INS201608-000431

PATIENT
  Sex: Female

DRUGS (1)
  1. SUBSYS [Suspect]
     Active Substance: FENTANYL
     Indication: BLADDER CANCER
     Route: 060
     Dates: start: 20150925

REACTIONS (5)
  - Constipation [Recovered/Resolved]
  - Hypomagnesaemia [Not Recovered/Not Resolved]
  - Diarrhoea [Not Recovered/Not Resolved]
  - Urinary tract infection [Recovered/Resolved]
  - Malaise [Not Recovered/Not Resolved]
